FAERS Safety Report 5941590-7 (Version None)
Quarter: 2008Q4

REPORT INFORMATION
  Report Type: 
  Country: None (occurrence: None)
  Receive Date: 20081104
  Receipt Date: 20081104
  Transmission Date: 20090506
  Serious: Yes (Other)
  Sender: FDA-Public Use
  Company Number: None

PATIENT
  Age: 75 Year
  Sex: Male

DRUGS (5)
  1. ANGIOMAX [Suspect]
     Indication: PERCUTANEOUS CORONARY INTERVENTION
     Dosage: 0.75 MG/KG, AT 08:00, 1.75 MG/KG, AT 8:00 TO 11:45
     Route: 042
     Dates: start: 20080917, end: 20080917
  2. ANGIOMAX [Suspect]
     Indication: PERCUTANEOUS CORONARY INTERVENTION
     Dosage: 0.75 MG/KG, AT 08:00, 1.75 MG/KG, AT 8:00 TO 11:45
     Route: 042
     Dates: start: 20080917, end: 20080917
  3. HEPARIN LOCK-FLUSH [Suspect]
  4. ACETYLSALICYLIC ACID SRT [Concomitant]
  5. EPTIFIBATIDE [Concomitant]

REACTIONS (3)
  - CATHETER THROMBOSIS [None]
  - CORONARY ARTERY STENOSIS [None]
  - TREATMENT FAILURE [None]
